FAERS Safety Report 4926509-X (Version None)
Quarter: 2006Q1

REPORT INFORMATION
  Report Type: 
  Country: None (occurrence: None)
  Receive Date: 20060228
  Receipt Date: 20050422
  Transmission Date: 20060701
  Serious: No
  Sender: FDA-Public Use
  Company Number: US-GLAXOSMITHKLINE-A0555361A

PATIENT
  Age: 19 Year
  Sex: Male

DRUGS (5)
  1. LAMICTAL [Suspect]
     Indication: BIPOLAR DISORDER
     Dosage: 50MG PER DAY
     Route: 048
     Dates: start: 20050301
  2. DEPAKOTE [Concomitant]
     Dosage: 1000MG PER DAY
     Dates: start: 20041101
  3. ZYPREXA [Concomitant]
     Dosage: 10MG AT NIGHT
     Dates: start: 20041101
  4. FISH OIL [Concomitant]
  5. VITAMINS [Concomitant]

REACTIONS (1)
  - RASH [None]
